FAERS Safety Report 8697261 (Version 3)
Quarter: 2012Q4

REPORT INFORMATION
  Report Type: 
  Country: FR (occurrence: FR)
  Receive Date: 20120801
  Receipt Date: 20121128
  Transmission Date: 20130627
  Serious: Yes (Other)
  Sender: FDA-Public Use
  Company Number: FR-ROCHE-1095313

PATIENT
  Age: 40 None
  Sex: Female

DRUGS (3)
  1. XOLAIR [Suspect]
     Indication: ASTHMA
     Route: 065
     Dates: start: 2006, end: 20110831
  2. XOLAIR [Suspect]
     Route: 065
     Dates: start: 20120227
  3. SERETIDE [Concomitant]
     Route: 065
     Dates: start: 20120227

REACTIONS (3)
  - Raynaud^s phenomenon [Not Recovered/Not Resolved]
  - Carpal tunnel syndrome [Unknown]
  - Capillary disorder [Unknown]
